FAERS Safety Report 9743607 (Version 2)
Quarter: 2013Q4

REPORT INFORMATION
  Report Type: Spontaneous
  Country: US (occurrence: US)
  Receive Date: 20131210
  Receipt Date: 20131212
  Transmission Date: 20140711
  Serious: No
  Sender: FDA-Public Use
  Company Number: US-TEVA-382739USA

PATIENT
  Age: 18 Year
  Sex: Female
  Weight: 65.38 kg

DRUGS (2)
  1. PARAGARD 380A [Suspect]
     Indication: CONTRACEPTION
     Route: 015
     Dates: start: 20130115, end: 20130115
  2. GLUCOPHAGE [Concomitant]
     Indication: POLYCYSTIC OVARIES

REACTIONS (3)
  - Muscle spasms [Recovered/Resolved]
  - Pelvic pain [Recovered/Resolved]
  - Nausea [Unknown]
